FAERS Safety Report 6026161-9 (Version None)
Quarter: 2008Q4

REPORT INFORMATION
  Report Type: 
  Country: None (occurrence: None)
  Receive Date: 20081230
  Receipt Date: 20081219
  Transmission Date: 20090506
  Serious: Yes (Life-Threatening, Hospitalization)
  Sender: FDA-Public Use
  Company Number: GXKR2008HR12192

PATIENT
  Age: 33 Year
  Sex: Female

DRUGS (1)
  1. CLARITHROMYCIN [Suspect]
     Dates: start: 20081101

REACTIONS (2)
  - HEPATIC CIRRHOSIS [None]
  - LIVER TRANSPLANT [None]
